FAERS Safety Report 8845738 (Version 1)
Quarter: 2012Q4

REPORT INFORMATION
  Report Type: 
  Country: CA (occurrence: CA)
  Receive Date: 20121017
  Receipt Date: 20121017
  Transmission Date: 20130627
  Serious: Yes (Hospitalization)
  Sender: FDA-Public Use
  Company Number: PHHY2008CA24737

PATIENT
  Age: 60 Year
  Sex: Female

DRUGS (1)
  1. EXJADE [Suspect]
     Indication: IRON OVERLOAD
     Dosage: 1525 mg, UNK
     Route: 048
     Dates: start: 200803, end: 200807

REACTIONS (1)
  - Myelodysplastic syndrome transformation [Recovered/Resolved with Sequelae]
